FAERS Safety Report 4700697-2 (Version None)
Quarter: 2005Q2

REPORT INFORMATION
  Report Type: 
  Country: None (occurrence: None)
  Receive Date: 20050627
  Receipt Date: 20050621
  Transmission Date: 20051028
  Serious: Yes (Death)
  Sender: FDA-Public Use
  Company Number: 200512070FR

PATIENT
  Age: 83 Year
  Sex: Male

DRUGS (6)
  1. FLAGYL [Suspect]
     Route: 042
     Dates: start: 20030704, end: 20030717
  2. OFLOCET [Suspect]
     Route: 042
     Dates: start: 20030704, end: 20030716
  3. AUGMENTIN [Suspect]
     Route: 048
     Dates: start: 20030704, end: 20030716
  4. ROCEPHIN [Suspect]
     Route: 042
     Dates: start: 20030704, end: 20030716
  5. GLICLAZIDE [Concomitant]
  6. CIFLOX [Concomitant]
     Dates: start: 20030704

REACTIONS (13)
  - ACIDOSIS [None]
  - ANAEMIA [None]
  - CLOSTRIDIUM COLITIS [None]
  - DIARRHOEA [None]
  - GASTROINTESTINAL HAEMORRHAGE [None]
  - HYPERKALAEMIA [None]
  - HYPOTENSION [None]
  - HYPOVOLAEMIC SHOCK [None]
  - MELAENA [None]
  - RENAL FAILURE [None]
  - SEPSIS [None]
  - SEPTIC SHOCK [None]
  - SMALL INTESTINAL HAEMORRHAGE [None]
